FAERS Safety Report 12538142 (Version 3)
Quarter: 2016Q4

REPORT INFORMATION
  Report Type: Spontaneous
  Country: BR (occurrence: BR)
  Receive Date: 20160707
  Receipt Date: 20161121
  Transmission Date: 20170207
  Serious: Yes (Other)
  Sender: FDA-Public Use
  Company Number: BR-ELI_LILLY_AND_COMPANY-BR201607000748

PATIENT
  Age: 69 Year
  Sex: Female

DRUGS (2)
  1. FORTEO [Concomitant]
     Active Substance: TERIPARATIDE
     Indication: PRODUCT USED FOR UNKNOWN INDICATION
     Dosage: UNK, UNKNOWN
     Dates: start: 201605
  2. EVISTA [Suspect]
     Active Substance: RALOXIFENE HYDROCHLORIDE
     Indication: PRODUCT USED FOR UNKNOWN INDICATION
     Dosage: 60 MG, BID
     Route: 065
     Dates: start: 201503

REACTIONS (7)
  - Anxiety [Unknown]
  - Renal disorder [Unknown]
  - Body height decreased [Unknown]
  - Arrhythmia [Recovered/Resolved]
  - Thoracic vertebral fracture [Unknown]
  - Renal cyst [Unknown]
  - Overdose [Unknown]

NARRATIVE: CASE EVENT DATE: 201503
